FAERS Safety Report 8401887-8 (Version None)
Quarter: 2012Q2

REPORT INFORMATION
  Report Type: 
  Country: None (occurrence: None)
  Receive Date: 20120601
  Receipt Date: 20111115
  Transmission Date: 20120825
  Serious: No
  Sender: FDA-Public Use
  Company Number: US-ABBOTT-11P-163-0874322-00

PATIENT
  Age: 61 Year
  Sex: Female

DRUGS (1)
  1. MARINOL [Suspect]
     Indication: NAUSEA

REACTIONS (1)
  - SOMNOLENCE [None]
